FAERS Safety Report 5618999-4 (Version None)
Quarter: 2008Q1

REPORT INFORMATION
  Report Type: 
  Country: None (occurrence: None)
  Receive Date: 20080207
  Receipt Date: 20080114
  Transmission Date: 20080703
  Serious: No
  Sender: FDA-Public Use
  Company Number: US-BOEHRINGER INGELHEIM GMBH, GERMANY-2008-BP-00720BP

PATIENT
  Age: 81 Year
  Sex: Male

DRUGS (4)
  1. FLOMAX [Suspect]
     Indication: BENIGN PROSTATIC HYPERPLASIA
     Route: 048
     Dates: start: 20071001, end: 20071001
  2. PERCOCET [Concomitant]
     Indication: FIBROMYALGIA
     Route: 048
  3. DARVOCET [Concomitant]
     Indication: FIBROMYALGIA
     Route: 048
  4. SALONPAS PATCH [Concomitant]
     Indication: FIBROMYALGIA
     Route: 061

REACTIONS (1)
  - RASH [None]
